FAERS Safety Report 21008380 (Version 1)
Quarter: 2022Q2

REPORT INFORMATION
  Report Type: Spontaneous
  Country: US (occurrence: US)
  Receive Date: 20220627
  Receipt Date: 20220627
  Transmission Date: 20220720
  Serious: Yes (Life-Threatening, Hospitalization)
  Sender: FDA-Public Use
  Company Number: US-drreddys-LIT/USA/22/0151543

PATIENT
  Age: 9 Day
  Sex: Female

DRUGS (1)
  1. BIVALIRUDIN [Suspect]
     Active Substance: BIVALIRUDIN
     Indication: Aortic thrombosis

REACTIONS (2)
  - Drug ineffective [Unknown]
  - Disease progression [Recovered/Resolved]
